FAERS Safety Report 13169520 (Version 2)
Quarter: 2017Q1

REPORT INFORMATION
  Report Type: Spontaneous
  Country: FR (occurrence: FR)
  Receive Date: 20170201
  Receipt Date: 20170208
  Transmission Date: 20170428
  Serious: Yes (Life-Threatening, Hospitalization)
  Sender: FDA-Public Use
  Company Number: PHHY2017FR013077

PATIENT

DRUGS (3)
  1. GILENYA [Suspect]
     Active Substance: FINGOLIMOD HYDROCHLORIDE
     Indication: PRODUCT USED FOR UNKNOWN INDICATION
     Route: 065
  2. FAMPYRA [Concomitant]
     Active Substance: DALFAMPRIDINE
     Indication: MULTIPLE SCLEROSIS
     Dosage: UNK
     Route: 065
  3. SIFROL [Concomitant]
     Active Substance: PRAMIPEXOLE
     Indication: RESTLESSNESS
     Dosage: UNK
     Route: 065

REACTIONS (14)
  - Renal mass [Unknown]
  - Weight decreased [Unknown]
  - Pulmonary mass [Unknown]
  - Peripheral T-cell lymphoma unspecified [Unknown]
  - Lymphadenopathy [Unknown]
  - Fatigue [Unknown]
  - Vogt-Koyanagi-Harada syndrome [Unknown]
  - Pyrexia [Unknown]
  - Mood altered [Unknown]
  - Retroperitoneal cancer [Unknown]
  - Pleuritic pain [Unknown]
  - Inflammation [Unknown]
  - Uveitis [Unknown]
  - Lymphopenia [Unknown]

NARRATIVE: CASE EVENT DATE: 20160725
